FAERS Safety Report 6831534-8 (Version None)
Quarter: 2010Q3

REPORT INFORMATION
  Report Type: 
  Country: None (occurrence: None)
  Receive Date: 20100712
  Receipt Date: 20100628
  Transmission Date: 20110219
  Serious: Yes (Hospitalization, Other)
  Sender: FDA-Public Use
  Company Number: PHHY2010FR43838

PATIENT
  Sex: Male
  Weight: 70 kg

DRUGS (15)
  1. MYFORTIC [Suspect]
     Indication: LIVER TRANSPLANT
     Dosage: 360 MG, BID
  2. MYFORTIC [Suspect]
     Dosage: 1 DF, MORNING AND IN THE EVENING,
  3. TRIATEC [Suspect]
     Dosage: 5 MG/DAY
  4. TRIATEC [Suspect]
     Dosage: 1.25 MG/DAY
  5. LASIX [Suspect]
     Dosage: 40 MG/DAY
  6. TARDYFERON [Concomitant]
     Dosage: 2 DF/DAY
  7. SODIUM BICARBONATE [Concomitant]
     Dosage: 1 G, UNK
  8. SODIUM BICARBONATE [Concomitant]
     Dosage: 2 DF, TID
  9. EUPRESSYL [Concomitant]
     Dosage: 60 MG, TID
  10. AMLOR [Concomitant]
     Dosage: 10 MG/DAY
  11. AVLOCARDYL [Concomitant]
     Dosage: 1 DF, UNK
  12. LESCOL [Concomitant]
     Dosage: 1 DF, UNK
  13. RISPERDAL [Concomitant]
     Dosage: 1 MG, BID
  14. RISPERDAL [Concomitant]
     Dosage: 1 DF, MORNING AND IN THE EVENING
  15. LORAZEPAM [Concomitant]
     Dosage: 2.5 MG/DAY

REACTIONS (8)
  - BLOOD PRESSURE DECREASED [None]
  - DIARRHOEA [None]
  - HAEMORRHAGE [None]
  - MEMORY IMPAIRMENT [None]
  - NORMOCHROMIC NORMOCYTIC ANAEMIA [None]
  - PSYCHOMOTOR SKILLS IMPAIRED [None]
  - RENAL FAILURE ACUTE [None]
  - URINARY TRACT INFECTION [None]
